FAERS Safety Report 8521289-3 (Version None)
Quarter: 2012Q3

REPORT INFORMATION
  Report Type: 
  Country: None (occurrence: None)
  Receive Date: 20120719
  Receipt Date: 20120715
  Transmission Date: 20120928
  Serious: Yes (Hospitalization)
  Sender: FDA-Public Use
  Company Number: IT-B.I. PHARMACEUTICALS,INC./RIDGEFIELD-2012-EU-03398BY

PATIENT
  Sex: Male

DRUGS (11)
  1. TELMISARTAN [Suspect]
     Route: 048
  2. NORVASC [Concomitant]
  3. RAMIPRIL [Concomitant]
  4. ASPIRIN [Concomitant]
  5. TELMISARTAN [Suspect]
     Dosage: 80 MG
     Route: 048
     Dates: start: 20120624, end: 20120627
  6. DIABREZIDE [Suspect]
     Indication: TYPE 2 DIABETES MELLITUS
     Dosage: 120 MG
     Route: 048
     Dates: start: 20090101
  7. GLUCOSE [Concomitant]
  8. RAMIPRIL [Concomitant]
  9. DIABREZIDE [Suspect]
     Dosage: 240 MG
     Route: 048
     Dates: start: 20120624, end: 20120627
  10. TELMISARTAN [Suspect]
     Indication: HYPERTENSION
     Dosage: 40 MG
     Route: 048
     Dates: start: 20090101, end: 20120623
  11. CARDURA [Concomitant]

REACTIONS (2)
  - HYPOGLYCAEMIA [None]
  - CONFUSIONAL STATE [None]
